FAERS Safety Report 6201843-4 (Version None)
Quarter: 2009Q2

REPORT INFORMATION
  Report Type: 
  Country: None (occurrence: None)
  Receive Date: 20090526
  Receipt Date: 20090513
  Transmission Date: 20091009
  Serious: Yes (Other)
  Sender: FDA-Public Use
  Company Number: DE-BIOGENIDEC-2009BI006957

PATIENT
  Age: 37 Year
  Sex: Female

DRUGS (1)
  1. AVONEX [Suspect]
     Indication: RELAPSING-REMITTING MULTIPLE SCLEROSIS
     Route: 030
     Dates: start: 20080307

REACTIONS (2)
  - MALIGNANT MELANOMA [None]
  - TREMOR [None]
